FAERS Safety Report 5456523-X (Version None)
Quarter: 2007Q3

REPORT INFORMATION
  Report Type: 
  Country: None (occurrence: None)
  Receive Date: 20070918
  Receipt Date: 20070914
  Transmission Date: 20080115
  Serious: Yes (Life-Threatening, Hospitalization, Congenital Anomaly)
  Sender: FDA-Public Use
  Company Number: A0624266A

PATIENT
  Sex: Male

DRUGS (2)
  1. PAXIL [Suspect]
     Indication: DRUG USE FOR UNKNOWN INDICATION
  2. PAROXETINE [Suspect]

REACTIONS (7)
  - DEVELOPMENTAL DELAY [None]
  - DRUG EXPOSURE DURING PREGNANCY [None]
  - DYSPEPSIA [None]
  - EATING DISORDER [None]
  - GASTROOESOPHAGEAL REFLUX DISEASE [None]
  - PERSISTENT FOETAL CIRCULATION [None]
  - RESPIRATORY DISTRESS [None]
